FAERS Safety Report 15594538 (Version 2)
Quarter: 2019Q1

REPORT INFORMATION
  Report Type: Spontaneous
  Country: FR (occurrence: FR)
  Receive Date: 20181107
  Receipt Date: 20190308
  Transmission Date: 20190417
  Serious: Yes (Life-Threatening, Hospitalization)
  Sender: FDA-Public Use
  Company Number: FR-CELGENEUS-FRA-20171207058

PATIENT
  Sex: Male
  Weight: 73 kg

DRUGS (13)
  1. VENETOCLAX. [Concomitant]
     Active Substance: VENETOCLAX
     Indication: ACUTE MYELOID LEUKAEMIA
     Route: 065
  2. BROMAZEPAM [Concomitant]
     Active Substance: BROMAZEPAM
     Indication: ANXIETY
     Dosage: 3 MILLIGRAM
     Route: 048
     Dates: start: 201711
  3. MONOPROST [Concomitant]
     Active Substance: LATANOPROST
     Indication: OCULAR HYPERTENSION
     Dosage: 1 DROPS
     Route: 001
  4. NICOPATCH [Concomitant]
     Active Substance: NICOTINE
     Indication: TOBACCO USER
     Dosage: 14 MILLIGRAM
     Route: 062
     Dates: start: 201711, end: 20180409
  5. AMLODIPINE [Concomitant]
     Active Substance: AMLODIPINE BESYLATE
     Indication: HYPERTENSION
     Dosage: 10 MILLIGRAM
     Route: 048
  6. LANTUS [Concomitant]
     Active Substance: INSULIN GLARGINE
     Dosage: 14 IU (INTERNATIONAL UNIT)
     Route: 058
     Dates: start: 20171213, end: 20171214
  7. LANSOPRAZOLE. [Concomitant]
     Active Substance: LANSOPRAZOLE
     Indication: GASTROOESOPHAGEAL REFLUX PROPHYLAXIS
     Dosage: 30 MILLIGRAM
     Route: 048
  8. INSULIN PORCINE [Concomitant]
     Active Substance: INSULIN PORK\INSULIN PURIFIED PORK
     Indication: HYPERGLYCAEMIA
     Route: 058
     Dates: start: 20171212, end: 20171214
  9. AZACITIDINE INJECTABLE [Suspect]
     Active Substance: AZACITIDINE
     Indication: ACUTE MYELOID LEUKAEMIA
     Dosage: 75 MILLIGRAM/SQ. METER
     Route: 058
     Dates: start: 20171205, end: 20171211
  10. MOVICOL [Concomitant]
     Active Substance: POLYETHYLENE GLYCOL 3350\POTASSIUM CHLORIDE\SODIUM BICARBONATE\SODIUM CHLORIDE
     Dosage: 2 DOSAGE FORMS
     Route: 048
     Dates: start: 20171215, end: 20180409
  11. RASBURICASE [Concomitant]
     Active Substance: RASBURICASE
     Indication: PROPHYLAXIS
     Route: 065
     Dates: start: 20171204, end: 20171204
  12. MOVICOL [Concomitant]
     Active Substance: POLYETHYLENE GLYCOL 3350\POTASSIUM CHLORIDE\SODIUM BICARBONATE\SODIUM CHLORIDE
     Indication: CONSTIPATION
     Dosage: 2 DOSAGE FORMS
     Route: 048
     Dates: start: 20171208, end: 20171214
  13. LANTUS [Concomitant]
     Active Substance: INSULIN GLARGINE
     Indication: HYPERGLYCAEMIA
     Dosage: 10 IU (INTERNATIONAL UNIT)
     Route: 058
     Dates: start: 20171212, end: 20171212

REACTIONS (1)
  - Febrile neutropenia [Recovered/Resolved]
